FAERS Safety Report 8046924-8 (Version None)
Quarter: 2012Q1

REPORT INFORMATION
  Report Type: 
  Country: None (occurrence: None)
  Receive Date: 20120116
  Receipt Date: 20120106
  Transmission Date: 20120608
  Serious: Yes (Hospitalization)
  Sender: FDA-Public Use
  Company Number: US-BAYER-2011-087691

PATIENT
  Age: 50 Year
  Sex: Female
  Weight: 65.76 kg

DRUGS (4)
  1. YASMIN [Suspect]
     Indication: CONTRACEPTION
     Dosage: UNK
     Route: 048
     Dates: start: 20060101, end: 20090101
  2. VITAMIN TAB [Concomitant]
     Route: 048
  3. IRON [Concomitant]
     Route: 048
  4. YAZ [Suspect]
     Indication: CONTRACEPTION
     Dosage: UNK
     Route: 048
     Dates: start: 20060101, end: 20090101

REACTIONS (2)
  - PULMONARY THROMBOSIS [None]
  - PAIN [None]
